FAERS Safety Report 8157797-7 (Version None)
Quarter: 2012Q1

REPORT INFORMATION
  Report Type: 
  Country: None (occurrence: None)
  Receive Date: 20120222
  Receipt Date: 20120120
  Transmission Date: 20120608
  Serious: No
  Sender: FDA-Public Use
  Company Number: US-ASTRAZENECA-2012SE04727

PATIENT
  Age: 35 Year
  Sex: Male
  Weight: 154.3 kg

DRUGS (11)
  1. ZESTORETIC [Suspect]
     Dosage: 20/12.5 MG DAILY
     Route: 048
  2. CRESTOR [Suspect]
     Route: 048
  3. LANTUS [Concomitant]
  4. ASPIRIN [Concomitant]
  5. COREG [Concomitant]
  6. NIASPAN [Concomitant]
  7. JANUMET [Concomitant]
  8. VICTOZA 2-PAK [Concomitant]
  9. PLAVIX [Concomitant]
  10. FISH OIL [Concomitant]
  11. NOVOLOG [Concomitant]

REACTIONS (2)
  - BLOOD PRESSURE INCREASED [None]
  - BLOOD GLUCOSE DECREASED [None]
